FAERS Safety Report 10597332 (Version 1)
Quarter: 2014Q4

REPORT INFORMATION
  Report Type: Spontaneous
  Country: US (occurrence: US)
  Receive Date: 20141121
  Receipt Date: 20141121
  Transmission Date: 20150529
  Serious: No
  Sender: FDA-Public Use
  Company Number: US-ELI_LILLY_AND_COMPANY-US201410011281

PATIENT
  Sex: Male

DRUGS (5)
  1. PARNATE [Concomitant]
     Active Substance: TRANYLCYPROMINE SULFATE
     Dosage: UNK, UNKNOWN
  2. IRON [Concomitant]
     Active Substance: IRON
     Dosage: UNK, UNKNOWN
  3. AXIRON [Suspect]
     Active Substance: TESTOSTERONE
     Indication: BLOOD TESTOSTERONE DECREASED
     Dosage: 60 MG, QD
     Route: 061
     Dates: start: 20141028
  4. PREVACID [Concomitant]
     Active Substance: LANSOPRAZOLE
     Dosage: UNK, UNKNOWN
  5. LEVOTHYROXINE [Concomitant]
     Active Substance: LEVOTHYROXINE
     Dosage: UNK, UNKNOWN

REACTIONS (1)
  - Underdose [Unknown]
